FAERS Safety Report 17913897 (Version 1)
Quarter: 2020Q2

REPORT INFORMATION
  Report Type: Spontaneous
  Country: US (occurrence: US)
  Receive Date: 20200618
  Receipt Date: 20200618
  Transmission Date: 20200714
  Serious: No
  Sender: FDA-Public Use
  Company Number: US-BAYER-2020-113489

PATIENT
  Age: 64 Year
  Sex: Male

DRUGS (1)
  1. NUBEQA [Suspect]
     Active Substance: DAROLUTAMIDE
     Indication: PROSTATE CANCER METASTATIC
     Dosage: 600 MG, BID
     Route: 048

REACTIONS (4)
  - Mania [None]
  - Fatigue [None]
  - Malaise [None]
  - Anaemia [None]

NARRATIVE: CASE EVENT DATE: 2020
